FAERS Safety Report 18998206 (Version 1)
Quarter: 2021Q1

REPORT INFORMATION
  Report Type: Spontaneous
  Country: IN (occurrence: IN)
  Receive Date: 20210311
  Receipt Date: 20210311
  Transmission Date: 20210420
  Serious: Yes (Death)
  Sender: FDA-Public Use
  Company Number: IN-PFIZER INC-2020501967

PATIENT
  Age: 60 Year
  Sex: Female

DRUGS (7)
  1. MUCAINE [ALUMINIUM HYDROXIDE GEL;MAGNESIUM HYDROXIDE;OXETACAINE] [Concomitant]
     Dosage: 2 TSP THREE TIMES A DAY
  2. LORBRIQUA [Suspect]
     Active Substance: LORLATINIB
     Indication: NON-SMALL CELL LUNG CANCER
     Dosage: 50 MG, 1X/DAY
     Route: 048
     Dates: start: 20201214, end: 20210227
  3. DEXORANGE [Concomitant]
     Dosage: 2 TSP(TABLESPOONS) BD(2XDAY)
  4. LUPENOX [Concomitant]
     Dosage: 0.6 U 1X/DAY X 30 DAYS
     Route: 058
  5. QUSTAIN P [Concomitant]
     Dosage: THREE TIMES A DAY FOR 2 WEEKS
  6. CLEXANE [Concomitant]
     Active Substance: ENOXAPARIN SODIUM
     Dosage: 0.6 U, 1X/DAY (X 30 DAYS)
     Route: 058
  7. FRESUBIN ONCO [CAFFEINE;CARBOHYDRATES NOS;FATS NOS;FIBRE, DIETARY;MINE [Concomitant]
     Dosage: 2 TSP(TABLESPOONS) BD(2XDAY)

REACTIONS (1)
  - Death [Fatal]
